FAERS Safety Report 4497351-1 (Version None)
Quarter: 2004Q4

REPORT INFORMATION
  Report Type: 
  Country: None (occurrence: None)
  Receive Date: 20041110
  Receipt Date: 20041029
  Transmission Date: 20050328
  Serious: Yes (Other)
  Sender: FDA-Public Use
  Company Number: JP-SOLVAY-00304003895

PATIENT
  Age: 72 Year
  Sex: Male

DRUGS (4)
  1. PLETAL [Concomitant]
     Indication: ILL-DEFINED DISORDER
     Dosage: DAILY DOSE: 200 MILLIGRAM(S)
     Route: 048
  2. DEPROMEL 25 [Suspect]
     Indication: PAIN
     Dosage: DAILY DOSE: 50 MILLIGRAM(S)
     Route: 048
     Dates: start: 20041015, end: 20041018
  3. PREDONINE [Concomitant]
     Indication: ILL-DEFINED DISORDER
     Dosage: DAILY DOSE: 10 MILLIGRAM(S)
     Route: 048
  4. BAYASPIRIN [Concomitant]
     Indication: ILL-DEFINED DISORDER
     Dosage: DAILY DOSE: 100 MILLIGRAM(S)
     Route: 048

REACTIONS (3)
  - ANURIA [None]
  - OXYGEN SATURATION DECREASED [None]
  - SHOCK [None]
